FAERS Safety Report 18414661 (Version 1)
Quarter: 2020Q4

REPORT INFORMATION
  Report Type: Spontaneous
  Country: CN (occurrence: CN)
  Receive Date: 20201022
  Receipt Date: 20201022
  Transmission Date: 20210114
  Serious: Yes (Other)
  Sender: FDA-Public Use
  Company Number: CN-JNJFOC-20201027499

PATIENT

DRUGS (10)
  1. NIMESULIDE [Suspect]
     Active Substance: NIMESULIDE
     Indication: CARDIOVASCULAR DISORDER
     Route: 065
     Dates: start: 2019
  2. ACETAMINOPHEN. [Suspect]
     Active Substance: ACETAMINOPHEN
     Indication: CARDIOVASCULAR DISORDER
     Route: 065
     Dates: start: 2019
  3. ACECLOFENAC [Suspect]
     Active Substance: ACECLOFENAC
     Indication: CARDIOVASCULAR DISORDER
     Route: 065
     Dates: start: 2019
  4. ASPIRIN                            /00002701/ [Suspect]
     Active Substance: ASPIRIN
     Indication: CARDIOVASCULAR DISORDER
     Route: 065
     Dates: start: 2019
  5. INDOMETHACIN                       /00003801/ [Suspect]
     Active Substance: INDOMETHACIN
     Indication: CARDIOVASCULAR DISORDER
     Route: 065
     Dates: start: 2019
  6. IBUPROFEN. [Suspect]
     Active Substance: IBUPROFEN
     Indication: CARDIOVASCULAR DISORDER
     Dosage: SUSPENSION DROPS (0.50 G).
     Route: 065
     Dates: start: 2019
  7. COMPOUND ACETYLSALICYLIC ACID [ASPIRIN\CAFFEINE\PHENACETIN] [Suspect]
     Active Substance: ASPIRIN\CAFFEINE\PHENACETIN
     Indication: CARDIOVASCULAR DISORDER
     Route: 065
     Dates: start: 2019
  8. MELOXICAM. [Suspect]
     Active Substance: MELOXICAM
     Indication: CARDIOVASCULAR DISORDER
     Route: 065
     Dates: start: 2019
  9. MELOXICAM. [Suspect]
     Active Substance: MELOXICAM
     Route: 065
  10. MELOXICAM. [Suspect]
     Active Substance: MELOXICAM
     Indication: CARDIOVASCULAR DISORDER
     Route: 065
     Dates: start: 2019

REACTIONS (9)
  - Off label use [Unknown]
  - Cardiac valve sclerosis [Unknown]
  - Arrhythmia [Unknown]
  - Platelet disorder [Unknown]
  - Cardiac failure [Unknown]
  - Product use in unapproved indication [Unknown]
  - Blood pressure abnormal [Unknown]
  - Lipid metabolism disorder [Unknown]
  - Cardiovascular disorder [Unknown]

NARRATIVE: CASE EVENT DATE: 2019
